FAERS Safety Report 8019222-6 (Version None)
Quarter: 2012Q1

REPORT INFORMATION
  Report Type: 
  Country: None (occurrence: None)
  Receive Date: 20120103
  Receipt Date: 20111228
  Transmission Date: 20120608
  Serious: Yes (Hospitalization)
  Sender: FDA-Public Use
  Company Number: US-BRISTOL-MYERS SQUIBB COMPANY-16322323

PATIENT
  Age: 76 Year
  Sex: Female
  Weight: 61 kg

DRUGS (3)
  1. VITAMIN TAB [Concomitant]
  2. PLAVIX [Concomitant]
  3. ERBITUX [Suspect]
     Indication: COLORECTAL CANCER
     Dosage: INFUSION LAST DOSE:14DEC2011

REACTIONS (9)
  - INCOHERENT [None]
  - SKIN HAEMORRHAGE [None]
  - DRY SKIN [None]
  - ASTHENIA [None]
  - PAIN [None]
  - VOMITING [None]
  - RASH PRURITIC [None]
  - SKIN ATROPHY [None]
  - WEIGHT FLUCTUATION [None]
